FAERS Safety Report 10261395 (Version 2)
Quarter: 2014Q3

REPORT INFORMATION
  Report Type: Spontaneous
  Country: US (occurrence: US)
  Receive Date: 20140626
  Receipt Date: 20140703
  Transmission Date: 20150326
  Serious: Yes (Death, Hospitalization, Other)
  Sender: FDA-Public Use
  Company Number: US-BAYER-2014-094899

PATIENT
  Age: 57 Year
  Sex: Male

DRUGS (6)
  1. CABOZANTINIB [Suspect]
     Active Substance: CABOZANTINIB
     Indication: METASTASES TO LUNG
  2. SORAFENIB (RAF KINASE INHIBITOR) [Suspect]
     Active Substance: SORAFENIB
     Indication: METASTASES TO LUNG
  3. CABOZANTINIB [Suspect]
     Active Substance: CABOZANTINIB
     Indication: THYROID CANCER STAGE IV
  4. CABOZANTINIB [Suspect]
     Active Substance: CABOZANTINIB
     Indication: METASTASES TO THE MEDIASTINUM
  5. SORAFENIB (RAF KINASE INHIBITOR) [Suspect]
     Active Substance: SORAFENIB
     Indication: METASTASES TO THE MEDIASTINUM
     Dosage: 400 MG, BID
  6. SORAFENIB (RAF KINASE INHIBITOR) [Suspect]
     Active Substance: SORAFENIB
     Indication: THYROID CANCER STAGE IV
     Dosage: 400 MG, BID

REACTIONS (6)
  - Thyroid cancer metastatic [None]
  - Tracheo-oesophageal fistula [None]
  - Bronchitis [None]
  - Lymphadenopathy mediastinal [None]
  - Tracheal fistula [Fatal]
  - Pneumonia aspiration [Recovered/Resolved]
